FAERS Safety Report 6978023-8 (Version None)
Quarter: 2010Q3

REPORT INFORMATION
  Report Type: 
  Country: None (occurrence: None)
  Receive Date: 20100913
  Receipt Date: 20100903
  Transmission Date: 20110219
  Serious: Yes (Death, Hospitalization)
  Sender: FDA-Public Use
  Company Number: GB-JNJFOC-20070500758

PATIENT
  Age: 55 Year
  Sex: Male

DRUGS (4)
  1. ACETAMINOPHEN [Suspect]
  2. ACETAMINOPHEN [Suspect]
     Indication: INTENTIONAL OVERDOSE
  3. ASPIRIN [Suspect]
     Indication: INTENTIONAL OVERDOSE
  4. CINNARIZINE [Suspect]
     Indication: PRODUCT USED FOR UNKNOWN INDICATION

REACTIONS (2)
  - DRUG TOXICITY [None]
  - MULTI-ORGAN FAILURE [None]
